FAERS Safety Report 6328365-4 (Version None)
Quarter: 2009Q3

REPORT INFORMATION
  Report Type: 
  Country: None (occurrence: None)
  Receive Date: 20090825
  Receipt Date: 20090408
  Transmission Date: 20100115
  Serious: No
  Sender: FDA-Public Use
  Company Number: US-ABBOTT-09P-163-0567213-00

PATIENT
  Sex: Female
  Weight: 65.83 kg

DRUGS (4)
  1. SYNTHROID [Suspect]
     Indication: HYPOTHYROIDISM
     Dosage: 50-75
     Route: 048
     Dates: end: 20090331
  2. SYNTHROID [Suspect]
     Route: 048
     Dates: start: 20090401
  3. ASPIRIN [Suspect]
     Indication: POLYCYTHAEMIA VERA
     Route: 048
  4. ASPIRIN [Suspect]
     Route: 048

REACTIONS (2)
  - EYE SWELLING [None]
  - URTICARIA [None]
